FAERS Safety Report 4853656-3 (Version None)
Quarter: 2005Q4

REPORT INFORMATION
  Report Type: 
  Country: None (occurrence: None)
  Receive Date: 20051125
  Receipt Date: 20050623
  Transmission Date: 20060501
  Serious: Yes (Life-Threatening)
  Sender: FDA-Public Use
  Company Number: US-JNJFOC-20050602219

PATIENT
  Age: 76 Year
  Sex: Female

DRUGS (4)
  1. LEVAQUIN [Suspect]
     Indication: NASOPHARYNGITIS
     Dosage: 500 MG
  2. ZOCOR [Concomitant]
  3. PREDNISONE [Concomitant]
  4. GLYBURIDE [Concomitant]

REACTIONS (1)
  - ANAPHYLACTIC REACTION [None]
